FAERS Safety Report 24946521 (Version 1)
Quarter: 2025Q1

REPORT INFORMATION
  Report Type: Spontaneous
  Country: ES (occurrence: ES)
  Receive Date: 20250210
  Receipt Date: 20250210
  Transmission Date: 20250409
  Serious: Yes (Life-Threatening, Hospitalization, Other)
  Sender: CHEPLAPHARM
  Company Number: None

PATIENT
  Age: 29 Year
  Sex: Female

DRUGS (11)
  1. QUETIAPINE [Interacting]
     Active Substance: QUETIAPINE
     Indication: Suicide attempt
     Route: 048
     Dates: start: 20241020, end: 20241020
  2. QUETIAPINE [Interacting]
     Active Substance: QUETIAPINE
     Indication: Suicide attempt
     Route: 048
  3. CLONAZEPAM [Interacting]
     Active Substance: CLONAZEPAM
     Indication: Suicide attempt
     Route: 048
     Dates: start: 20241020, end: 20241020
  4. CLONAZEPAM [Interacting]
     Active Substance: CLONAZEPAM
     Indication: Suicide attempt
     Route: 048
  5. DULOXETINE [Interacting]
     Active Substance: DULOXETINE
     Indication: Suicide attempt
     Route: 048
     Dates: start: 20241020, end: 20241020
  6. DULOXETINE [Interacting]
     Active Substance: DULOXETINE
     Indication: Suicide attempt
     Route: 048
  7. CARIPRAZINE [Interacting]
     Active Substance: CARIPRAZINE
     Indication: Suicide attempt
     Route: 048
     Dates: start: 20241020, end: 20241020
  8. CLORAZEPATE DIPOTASSIUM [Interacting]
     Active Substance: CLORAZEPATE DIPOTASSIUM
     Indication: Suicide attempt
     Route: 048
     Dates: start: 20241020, end: 20241020
  9. CLORAZEPATE DIPOTASSIUM [Interacting]
     Active Substance: CLORAZEPATE DIPOTASSIUM
     Indication: Suicide attempt
     Route: 048
  10. TRAZODONE [Interacting]
     Active Substance: TRAZODONE HYDROCHLORIDE
     Indication: Suicide attempt
     Route: 048
     Dates: start: 20241020, end: 20241020
  11. TRAZODONE [Interacting]
     Active Substance: TRAZODONE HYDROCHLORIDE
     Indication: Suicide attempt
     Route: 048

REACTIONS (6)
  - Depressed level of consciousness [Recovered/Resolved]
  - Respiratory depression [Recovered/Resolved]
  - Pneumonia aspiration [Recovered/Resolved]
  - Acute kidney injury [Unknown]
  - Suicide attempt [Unknown]
  - Agitation [Unknown]

NARRATIVE: CASE EVENT DATE: 20241020
